FAERS Safety Report 15093949 (Version 3)
Quarter: 2018Q3

REPORT INFORMATION
  Report Type: Report from Study
  Country: US (occurrence: US)
  Receive Date: 20180629
  Receipt Date: 20180828
  Transmission Date: 20181010
  Serious: Yes (Other)
  Sender: FDA-Public Use
  Company Number: US-JAZZ-2018-US-009746

PATIENT
  Age: 28 Year
  Sex: Female

DRUGS (7)
  1. PROAIR HFA [Concomitant]
     Active Substance: ALBUTEROL SULFATE
  2. ADDERALL [Concomitant]
     Active Substance: AMPHETAMINE ASPARTATE\AMPHETAMINE SULFATE\DEXTROAMPHETAMINE SACCHARATE\DEXTROAMPHETAMINE SULFATE
  3. ERGOCALCIFEROL. [Concomitant]
     Active Substance: ERGOCALCIFEROL
  4. XYREM [Suspect]
     Active Substance: SODIUM OXYBATE
     Indication: NARCOLEPSY
     Dosage: 2.5 G, BID
     Route: 048
     Dates: start: 20180614
  5. L?METHYLFOLATE [Concomitant]
     Active Substance: LEVOMEFOLIC ACID
  6. TRINTELLIX [Concomitant]
     Active Substance: VORTIOXETINE HYDROBROMIDE
  7. ATIVAN [Concomitant]
     Active Substance: LORAZEPAM

REACTIONS (5)
  - Haematemesis [Recovering/Resolving]
  - Somnolence [Unknown]
  - Loss of consciousness [Recovering/Resolving]
  - Nausea [Unknown]
  - Product storage error [Unknown]

NARRATIVE: CASE EVENT DATE: 201806
